FAERS Safety Report 5578028-8 (Version None)
Quarter: 2007Q4

REPORT INFORMATION
  Report Type: 
  Country: None (occurrence: None)
  Receive Date: 20071231
  Receipt Date: 20071221
  Transmission Date: 20080405
  Serious: Yes (Other)
  Sender: FDA-Public Use
  Company Number: AU-AVENTIS-200720273GDDC

PATIENT
  Age: 49 Year
  Sex: Female
  Weight: 64 kg

DRUGS (8)
  1. ARAVA [Suspect]
     Indication: RHEUMATOID ARTHRITIS
     Route: 048
     Dates: start: 20040807, end: 20070328
  2. ARAVA [Suspect]
     Dates: start: 20070613, end: 20071218
  3. METHOTREXATE [Concomitant]
     Indication: RHEUMATOID ARTHRITIS
     Route: 048
     Dates: start: 20060125, end: 20070310
  4. FOLIC ACID [Concomitant]
     Dosage: DOSE: UNK
  5. PREDNISONE TAB [Concomitant]
     Dosage: DOSE: UNK
  6. GLUCOSAMINE [Concomitant]
     Dosage: DOSE: UNK
  7. FISH OIL [Concomitant]
     Dosage: DOSE: UNK
  8. ERYTHROMYCIN [Concomitant]
     Dosage: DOSE: UNK
     Route: 048
     Dates: start: 20070310, end: 20070328

REACTIONS (1)
  - LIVER FUNCTION TEST ABNORMAL [None]
